FAERS Safety Report 15487381 (Version 1)
Quarter: 2018Q4

REPORT INFORMATION
  Report Type: Other
  Country: DE (occurrence: DE)
  Receive Date: 20181011
  Receipt Date: 20181011
  Transmission Date: 20190205
  Serious: Yes (Other)
  Sender: FDA-Public Use
  Company Number: DE-HIKMA PHARMACEUTICALS USA INC.-DE-H14001-18-07801

PATIENT
  Age: 5 Year
  Sex: Female

DRUGS (9)
  1. ANTITHYMOCYTE IMMUNOGLOBULIN [Suspect]
     Active Substance: THYMOCYTE IMMUNE GLOBULIN NOS
     Indication: PRODUCT USED FOR UNKNOWN INDICATION
     Dosage: ()
     Route: 065
  2. MELPHALAN. [Concomitant]
     Active Substance: MELPHALAN
     Indication: PRODUCT USED FOR UNKNOWN INDICATION
     Dosage: UNKNOWN ()
  3. ALEMTUZUMAB [Concomitant]
     Active Substance: ALEMTUZUMAB
     Indication: PRODUCT USED FOR UNKNOWN INDICATION
     Dosage: UNKNOWN ()
  4. CIDOFOVIR. [Suspect]
     Active Substance: CIDOFOVIR
     Indication: HERPES SIMPLEX
     Dosage: UNKNOWN ()
     Route: 065
  5. FLUDARABINE [Suspect]
     Active Substance: FLUDARABINE PHOSPHATE
     Indication: PRODUCT USED FOR UNKNOWN INDICATION
     Dosage: ()
     Route: 065
  6. CYCLOPHOSPHAMIDE. [Concomitant]
     Active Substance: CYCLOPHOSPHAMIDE
     Indication: PRODUCT USED FOR UNKNOWN INDICATION
     Dosage: UNKNOWN ()
  7. ACICLOVIR [Suspect]
     Active Substance: ACYCLOVIR
     Indication: PROPHYLAXIS
     Dosage: UNKNOWN ()
     Route: 065
  8. ACICLOVIR [Suspect]
     Active Substance: ACYCLOVIR
     Indication: HERPES SIMPLEX
  9. THIOTEPA. [Suspect]
     Active Substance: THIOTEPA
     Indication: PRODUCT USED FOR UNKNOWN INDICATION
     Dosage: UNKNOWN ()
     Route: 065

REACTIONS (15)
  - Lymphoproliferative disorder [Unknown]
  - Viraemia [Unknown]
  - Viral load increased [Unknown]
  - Disease recurrence [Unknown]
  - Adenovirus infection [Recovered/Resolved]
  - Herpes simplex [Unknown]
  - Stomatitis [Unknown]
  - Nervous system disorder [Unknown]
  - Epstein-Barr virus infection [Unknown]
  - Drug resistance [Unknown]
  - Encephalitis [Unknown]
  - Pharyngitis [Unknown]
  - Mucosal inflammation [Unknown]
  - Herpes simplex [Recovered/Resolved]
  - Drug ineffective [Unknown]
